FAERS Safety Report 5865325-1 (Version None)
Quarter: 2008Q3

REPORT INFORMATION
  Report Type: 
  Country: None (occurrence: None)
  Receive Date: 20080829
  Receipt Date: 20080820
  Transmission Date: 20090109
  Serious: Yes (Other)
  Sender: FDA-Public Use
  Company Number: JP-MERCK-0808USA04265

PATIENT
  Age: 19 Day

DRUGS (3)
  1. DECADRON SRC [Suspect]
     Indication: BRONCHOPULMONARY DYSPLASIA
     Route: 048
  2. [THERAPY UNSPECIFIED] [Concomitant]
     Route: 042
  3. [THERAPY UNSPECIFIED] [Concomitant]
     Route: 042

REACTIONS (1)
  - SHOCK [None]
